FAERS Safety Report 5061056-9 (Version None)
Quarter: 2006Q2

REPORT INFORMATION
  Report Type: 
  Country: None (occurrence: None)
  Receive Date: 20060630
  Receipt Date: 20060524
  Transmission Date: 20061013
  Serious: No
  Sender: FDA-Public Use
  Company Number: US180717

PATIENT
  Age: 62 Year
  Sex: Male

DRUGS (1)
  1. SENSIPAR [Suspect]
     Indication: HYPERPARATHYROIDISM SECONDARY
     Dosage: 90 MG, 1 IN 1 DAYS,
     Dates: start: 20051001

REACTIONS (2)
  - MYALGIA [None]
  - PAIN [None]
